FAERS Safety Report 12551342 (Version 1)
Quarter: 2016Q3

REPORT INFORMATION
  Report Type: Spontaneous
  Country: US (occurrence: US)
  Receive Date: 20160713
  Receipt Date: 20160713
  Transmission Date: 20161109
  Serious: No
  Sender: FDA-Public Use
  Company Number: US-TEVA-658021USA

PATIENT
  Age: 33 Year
  Sex: Female

DRUGS (8)
  1. BUTALBITAL [Concomitant]
     Active Substance: BUTALBITAL
  2. SPIRONOLACTONE. [Concomitant]
     Active Substance: SPIRONOLACTONE
  3. VERAPAMIL [Concomitant]
     Active Substance: VERAPAMIL HYDROCHLORIDE
  4. CYCLOBENZAPRINE [Concomitant]
     Active Substance: CYCLOBENZAPRINE
  5. ZECUITY [Suspect]
     Active Substance: SUMATRIPTAN SUCCINATE
     Route: 062
     Dates: start: 20160503
  6. DOXEPIN [Concomitant]
     Active Substance: DOXEPIN
  7. METHOTREXATE. [Concomitant]
     Active Substance: METHOTREXATE
  8. ALPRAZOLAM. [Concomitant]
     Active Substance: ALPRAZOLAM

REACTIONS (2)
  - Application site pain [Unknown]
  - Application site urticaria [Unknown]

NARRATIVE: CASE EVENT DATE: 20160503
